FAERS Safety Report 4298515-2 (Version None)
Quarter: 2004Q1

REPORT INFORMATION
  Report Type: 
  Country: None (occurrence: None)
  Receive Date: 20040218
  Receipt Date: 20031203
  Transmission Date: 20041129
  Serious: Yes (Other)
  Sender: FDA-Public Use
  Company Number: WAES 0312USA00799

PATIENT
  Age: 55 Year
  Sex: Male

DRUGS (13)
  1. BIOFERMIN [Concomitant]
     Route: 048
  2. MADOPAR [Concomitant]
     Route: 048
     Dates: start: 20031002, end: 20031120
  3. VITAMIN A [Concomitant]
     Route: 048
     Dates: start: 20030117, end: 20031001
  4. VEGETAMIN B [Concomitant]
     Route: 048
     Dates: start: 20031002, end: 20031120
  5. CYCLOSERINE [Concomitant]
     Route: 048
     Dates: start: 20030117, end: 20031106
  6. TUBERACTIN [Concomitant]
     Route: 030
     Dates: start: 20030117, end: 20031105
  7. ETHIONAMIDE [Concomitant]
     Route: 048
     Dates: start: 20030117, end: 20031106
  8. PEPCID [Suspect]
     Route: 048
     Dates: start: 20030506, end: 20031120
  9. ROHYPNOL [Concomitant]
     Route: 048
     Dates: start: 20030117, end: 20031120
  10. CYANOCOBALAMIN [Concomitant]
     Route: 048
     Dates: start: 20030409, end: 20031120
  11. CABAGIN-U [Concomitant]
     Route: 048
     Dates: start: 20030117, end: 20031120
  12. PURSENNID [Concomitant]
     Route: 048
     Dates: start: 20030903, end: 20031120
  13. ARTANE [Concomitant]
     Route: 048
     Dates: start: 20030318, end: 20031120

REACTIONS (4)
  - HAEMATOCRIT DECREASED [None]
  - HAEMOGLOBIN DECREASED [None]
  - PLATELET COUNT DECREASED [None]
  - WHITE BLOOD CELL COUNT DECREASED [None]
